FAERS Safety Report 9369796 (Version 1)
Quarter: 2013Q2

REPORT INFORMATION
  Report Type: Spontaneous
  Country: IT (occurrence: IT)
  Receive Date: 20130626
  Receipt Date: 20130626
  Transmission Date: 20140414
  Serious: Yes (Death, Other)
  Sender: FDA-Public Use
  Company Number: IT-JNJFOC-20130607375

PATIENT
  Sex: 0

DRUGS (8)
  1. DOXORUBICIN HYDROCHLORIDE [Suspect]
     Indication: HODGKIN^S DISEASE
     Route: 042
  2. BLEOMYCIN [Suspect]
     Indication: HODGKIN^S DISEASE
     Route: 065
  3. VINBLASTINE [Suspect]
     Indication: HODGKIN^S DISEASE
     Route: 065
  4. DACARBAZINE [Suspect]
     Indication: HODGKIN^S DISEASE
     Route: 065
  5. ETOPOSIDE [Suspect]
     Indication: HODGKIN^S DISEASE
     Route: 065
  6. CYCLOPHOSPHAMIDE [Suspect]
     Indication: HODGKIN^S DISEASE
     Route: 065
  7. PROCARBAZINE [Suspect]
     Indication: HODGKIN^S DISEASE
     Route: 065
  8. PREDNISONE [Suspect]
     Indication: HODGKIN^S DISEASE
     Route: 065

REACTIONS (5)
  - Death [Fatal]
  - Hodgkin^s disease [Unknown]
  - Dyspnoea [Unknown]
  - Haematotoxicity [Unknown]
  - Hodgkin^s disease recurrent [Unknown]
